FAERS Safety Report 5504881-X (Version None)
Quarter: 2007Q4

REPORT INFORMATION
  Report Type: 
  Country: None (occurrence: None)
  Receive Date: 20071031
  Receipt Date: 20071017
  Transmission Date: 20080405
  Serious: Yes (Hospitalization, Other)
  Sender: FDA-Public Use
  Company Number: A-US2007-16004

PATIENT
  Age: 60 Year
  Sex: Female

DRUGS (1)
  1. TRACLEER [Suspect]
     Indication: PULMONARY HYPERTENSION
     Dosage: ORAL
     Route: 048
     Dates: start: 20060101

REACTIONS (4)
  - CONDITION AGGRAVATED [None]
  - FLUID RETENTION [None]
  - LIVER TRANSPLANT [None]
  - PORTOPULMONARY HYPERTENSION [None]
